FAERS Safety Report 6986342-4 (Version None)
Quarter: 2010Q3

REPORT INFORMATION
  Report Type: 
  Country: None (occurrence: None)
  Receive Date: 20100910
  Receipt Date: 20100826
  Transmission Date: 20110219
  Serious: Yes (Other)
  Sender: FDA-Public Use
  Company Number: DSA_43876_2010

PATIENT
  Age: 51 Year
  Sex: Female

DRUGS (3)
  1. WELLBUTRIN SR [Suspect]
     Indication: DEPRESSION
     Dosage: (DF)
     Dates: start: 20100608, end: 20100707
  2. CIPRALEX [Concomitant]
  3. MIRTAZAPINE [Concomitant]

REACTIONS (1)
  - COMPULSIONS [None]
